FAERS Safety Report 16960176 (Version 1)
Quarter: 2019Q4

REPORT INFORMATION
  Report Type: Spontaneous
  Country: GB (occurrence: GB)
  Receive Date: 20191025
  Receipt Date: 20191025
  Transmission Date: 20200122
  Serious: Yes (Other)
  Sender: FDA-Public Use
  Company Number: GB-TEVA-2019-GB-1127178

PATIENT
  Age: 35 Year
  Sex: Female
  Weight: 93 kg

DRUGS (6)
  1. NORETHISTERONE [Suspect]
     Active Substance: NORETHINDRONE
     Dosage: 3 DOSAGE FORM
     Route: 048
     Dates: start: 20190912, end: 20190925
  2. FOLIC ACID. [Concomitant]
     Active Substance: FOLIC ACID
  3. VITAMIN D [Concomitant]
     Active Substance: VITAMIN D NOS
  4. LEVOTHYROXINE SODIUM. [Concomitant]
     Active Substance: LEVOTHYROXINE SODIUM
  5. CALCIUM [Concomitant]
     Active Substance: CALCIUM
  6. ZINC. [Concomitant]
     Active Substance: ZINC

REACTIONS (1)
  - Dysmenorrhoea [Not Recovered/Not Resolved]

NARRATIVE: CASE EVENT DATE: 20190929
